FAERS Safety Report 8420993 (Version 4)
Quarter: 2014Q4

REPORT INFORMATION
  Report Type: Report from Study
  Country: GR (occurrence: GR)
  Receive Date: 20120222
  Receipt Date: 20141222
  Transmission Date: 20150529
  Serious: Yes (Death, Other)
  Sender: FDA-Public Use
  Company Number: GR-ROCHE-722891

PATIENT

DRUGS (5)
  1. BORTEZOMIB [Suspect]
     Active Substance: BORTEZOMIB
     Dosage: ON DAYS 1, 8, 15 AND 22
     Route: 042
  2. DEXAMETHASONE. [Suspect]
     Active Substance: DEXAMETHASONE
     Indication: WALDENSTROM^S MACROGLOBULINAEMIA
     Route: 042
  3. RITUXIMAB [Suspect]
     Active Substance: RITUXIMAB
     Indication: WALDENSTROM^S MACROGLOBULINAEMIA
     Dosage: IN TOTAL 8 INFUSION WERE GIVEN.
     Route: 042
  4. BORTEZOMIB [Suspect]
     Active Substance: BORTEZOMIB
     Indication: WALDENSTROM^S MACROGLOBULINAEMIA
     Dosage: ON DAYS 1,4,8 AND 11
     Route: 042
  5. VALACYCLOVIR [Concomitant]
     Active Substance: VALACYCLOVIR HYDROCHLORIDE
     Indication: ANTIVIRAL PROPHYLAXIS

REACTIONS (21)
  - Septic shock [Fatal]
  - Death [Fatal]
  - Herpes zoster [Unknown]
  - Cardiovascular disorder [Unknown]
  - Neuropathy peripheral [Unknown]
  - Neuralgia [Unknown]
  - Diarrhoea [Unknown]
  - Hypotension [Unknown]
  - Constipation [Unknown]
  - Fatigue [Unknown]
  - Lung infiltration [Recovered/Resolved]
  - Respiratory disorder [Unknown]
  - Blood creatinine increased [Unknown]
  - Neutropenia [Unknown]
  - Infection [Unknown]
  - Dyspnoea [Recovered/Resolved]
  - Oxygen saturation decreased [Recovered/Resolved]
  - Thrombocytopenia [Unknown]
  - Gastrointestinal toxicity [Unknown]
  - Pyrexia [Unknown]
  - Pneumonitis [Unknown]
